FAERS Safety Report 8575172-8 (Version None)
Quarter: 2012Q3

REPORT INFORMATION
  Report Type: 
  Country: None (occurrence: None)
  Receive Date: 20120807
  Receipt Date: 20111012
  Transmission Date: 20120928
  Serious: No
  Sender: FDA-Public Use
  Company Number: US-COVIDIEN/TYCO HEALTHCARE/MALLINCKRODT-T201102525

PATIENT
  Sex: Female

DRUGS (3)
  1. XANAX [Concomitant]
     Dosage: 0.5 MG, UNK
  2. ATIVAN [Concomitant]
     Dosage: 2 MG, UNK
  3. PAMELOR [Suspect]
     Indication: DEPRESSION
     Dosage: 25 MG, QD AT BEDTIME
     Route: 048
     Dates: start: 20110701, end: 20111009

REACTIONS (1)
  - BLOOD URINE PRESENT [None]
